FAERS Safety Report 20802489 (Version 1)
Quarter: 2022Q2

REPORT INFORMATION
  Report Type: Spontaneous
  Country: US (occurrence: None)
  Receive Date: 20220507
  Receipt Date: 20220507
  Transmission Date: 20220721
  Serious: Yes (Other)
  Sender: FDA-Public Use
  Company Number: None

PATIENT
  Sex: 0

DRUGS (1)
  1. AJOVY [Suspect]
     Active Substance: FREMANEZUMAB-VFRM
     Indication: Migraine prophylaxis
     Dosage: OTHER FREQUENCY : ONCE A MONTH;?
     Route: 058
     Dates: start: 20220301

REACTIONS (6)
  - Injection site swelling [None]
  - Pruritus [None]
  - Allergy to metals [None]
  - Needle issue [None]
  - Therapy cessation [None]
  - Injection related reaction [None]

NARRATIVE: CASE EVENT DATE: 20220501
